FAERS Safety Report 19997662 (Version 4)
Quarter: 2022Q1

REPORT INFORMATION
  Report Type: Report from Study
  Country: CA (occurrence: CA)
  Receive Date: 20211026
  Receipt Date: 20220307
  Transmission Date: 20220423
  Serious: Yes (Other)
  Sender: FDA-Public Use
  Company Number: CA-CELGENE-CAN-20210901272

PATIENT
  Sex: Male
  Weight: 76.1 kg

DRUGS (3)
  1. REBLOZYL [Suspect]
     Active Substance: LUSPATERCEPT-AAMT
     Indication: Myelodysplastic syndrome
     Dosage: 1 MILLIGRAM/KILOGRAM
     Route: 058
     Dates: start: 20210722
  2. REBLOZYL [Suspect]
     Active Substance: LUSPATERCEPT-AAMT
     Dosage: 1.33 MILLIGRAM/KILOGRAM
     Route: 058
     Dates: start: 20210722
  3. REBLOZYL [Suspect]
     Active Substance: LUSPATERCEPT-AAMT
     Dosage: 1.33 MILLIGRAM/KILOGRAM
     Route: 058
     Dates: start: 20210924

REACTIONS (6)
  - Haemoglobin decreased [Unknown]
  - Erectile dysfunction [Recovered/Resolved]
  - Tooth disorder [Recovered/Resolved]
  - Headache [Unknown]
  - Dizziness [Unknown]
  - Headache [Unknown]

NARRATIVE: CASE EVENT DATE: 20210101
